FAERS Safety Report 13853202 (Version 1)
Quarter: 2017Q3

REPORT INFORMATION
  Report Type: Report from Study
  Country: US (occurrence: US)
  Receive Date: 20170810
  Receipt Date: 20170810
  Transmission Date: 20171127
  Serious: Yes (Other)
  Sender: FDA-Public Use
  Company Number: US-ROCHE-1906095

PATIENT
  Sex: Male

DRUGS (2)
  1. VALGANCICLOVIR. [Suspect]
     Active Substance: VALGANCICLOVIR
     Indication: PRODUCT USED FOR UNKNOWN INDICATION
     Route: 048
  2. 5-FLUOROCYTOSINE [Suspect]
     Active Substance: FLUCYTOSINE
     Indication: PRODUCT USED FOR UNKNOWN INDICATION
     Route: 048

REACTIONS (4)
  - Deep vein thrombosis [Unknown]
  - Hyperglycaemia [Unknown]
  - Hypophosphataemia [Unknown]
  - Prothrombin time prolonged [Unknown]
